FAERS Safety Report 7324229-8 (Version None)
Quarter: 2011Q1

REPORT INFORMATION
  Report Type: 
  Country: None (occurrence: None)
  Receive Date: 20110301
  Receipt Date: 20110218
  Transmission Date: 20110831
  Serious: Yes (Death, Life-Threatening, Hospitalization)
  Sender: FDA-Public Use
  Company Number: DE-AMGEN-UK300646

PATIENT
  Age: 71 Year
  Sex: Female

DRUGS (13)
  1. IRINOTECAN [Concomitant]
     Dosage: UNK UNK, UNK
     Route: 065
  2. FOLINIC ACID [Concomitant]
     Dosage: UNK UNK, UNK
     Route: 065
  3. METAMIZOLE [Concomitant]
     Dosage: UNK UNK, UNK
     Route: 048
     Dates: start: 20080803, end: 20080810
  4. RANITIDINE [Concomitant]
     Dosage: UNK UNK, UNK
     Route: 065
     Dates: start: 20080122, end: 20080601
  5. OXAZEPAM [Concomitant]
     Dosage: 10 MG, UNK
     Route: 048
     Dates: start: 20080129, end: 20080513
  6. LORAZEPAM [Concomitant]
     Dosage: .5 MG, UNK
     Route: 048
     Dates: start: 20080513
  7. MELPERONE HYDROCHLORIDE [Concomitant]
     Dosage: UNK UNK, UNK
     Route: 048
     Dates: start: 20080124
  8. FLUOROURACIL [Concomitant]
     Dosage: UNK UNK, UNK
     Route: 065
  9. PANITUMUMAB [Suspect]
     Indication: COLORECTAL CANCER
     Dosage: 278 MG, Q2WK
     Route: 042
     Dates: start: 20080107, end: 20080805
  10. DYTIDE [Concomitant]
     Dosage: 37.5 MG, QD
     Route: 048
     Dates: start: 20000101
  11. LEVOTHYROXINE SODIUM [Concomitant]
     Dosage: 100 MG, QD
     Route: 048
     Dates: start: 20020101
  12. METOCLOPRAMIDE HCL [Concomitant]
     Dosage: UNK UNK, UNK
     Route: 048
     Dates: start: 20080803
  13. HYDROCORTISONE [Concomitant]
     Dosage: UNK UNK, UNK
     Route: 062
     Dates: start: 20080513

REACTIONS (3)
  - FATIGUE [None]
  - NEOPLASM MALIGNANT [None]
  - DIARRHOEA [None]
